FAERS Safety Report 5612692-X (Version None)
Quarter: 2008Q1

REPORT INFORMATION
  Report Type: 
  Country: None (occurrence: None)
  Receive Date: 20080129
  Receipt Date: 20080114
  Transmission Date: 20080703
  Serious: Yes (Death)
  Sender: FDA-Public Use
  Company Number: 2008S1000037

PATIENT
  Age: 22 Year
  Sex: Female

DRUGS (6)
  1. DARVON [Suspect]
     Dosage: PO
     Route: 048
     Dates: end: 20060101
  2. CODEINE SUL TAB [Suspect]
     Dosage: PO
     Route: 048
     Dates: end: 20060101
  3. HYDROCODONE BITARTRATE [Suspect]
     Dosage: PO
     Route: 048
     Dates: end: 20060101
  4. MEPERIDINE [Suspect]
     Dosage: PO
     Route: 048
     Dates: end: 20060101
  5. DIPHENHYDRAMINE HCL [Suspect]
     Dosage: PO
     Route: 048
     Dates: end: 20060101
  6. AMPHETAMINE SULFATE [Suspect]
     Dosage: PO
     Route: 048

REACTIONS (2)
  - CARDIAC ARREST [None]
  - RESPIRATORY ARREST [None]
